FAERS Safety Report 4609570-1 (Version None)
Quarter: 2005Q1

REPORT INFORMATION
  Report Type: 
  Country: None (occurrence: None)
  Receive Date: 20050314
  Receipt Date: 20050314
  Transmission Date: 20050727
  Serious: Yes (Other)
  Sender: FDA-Public Use
  Company Number: None

PATIENT
  Sex: Female
  Weight: 81.2 kg

DRUGS (2)
  1. CYTARABINE [Suspect]
     Dosage: SEE IMAGE
     Route: 003
     Dates: start: 20040721
  2. DAUNORUBICIN HCL [Suspect]
     Dosage: SEE IMAGE
     Route: 042
     Dates: start: 20040721

REACTIONS (4)
  - ABDOMINAL PAIN [None]
  - BACTERIAL INFECTION [None]
  - BODY TEMPERATURE INCREASED [None]
  - FULL BLOOD COUNT ABNORMAL [None]
